FAERS Safety Report 7749810-3 (Version None)
Quarter: 2011Q3

REPORT INFORMATION
  Report Type: 
  Country: None (occurrence: None)
  Receive Date: 20110914
  Receipt Date: 20110908
  Transmission Date: 20111222
  Serious: Yes (Life-Threatening, Hospitalization)
  Sender: FDA-Public Use
  Company Number: ES-SANOFI-AVENTIS-2011SA058379

PATIENT
  Age: 63 Year
  Sex: Male
  Weight: 95 kg

DRUGS (5)
  1. ARAVA [Suspect]
     Indication: RHEUMATOID ARTHRITIS
     Route: 048
     Dates: start: 20090601, end: 20110623
  2. ETANERCEPT [Suspect]
     Indication: RHEUMATOID ARTHRITIS
     Route: 058
     Dates: start: 20090601, end: 20110623
  3. CALCIUM CARBONATE [Concomitant]
     Dosage: 1 COMP/12 HORAS
     Route: 051
     Dates: start: 20090601
  4. VALSARTAN AND HYDROCHLOROTHIAZIDE [Concomitant]
     Route: 048
  5. OMEPRAZOLE [Concomitant]
     Route: 048
     Dates: start: 20090601

REACTIONS (1)
  - NECROTISING FASCIITIS [None]
